FAERS Safety Report 10335125 (Version 1)
Quarter: 2014Q3

REPORT INFORMATION
  Report Type: Spontaneous
  Country: US (occurrence: None)
  Receive Date: 20140722
  Receipt Date: 20140722
  Transmission Date: 20150326
  Serious: Yes (Hospitalization)
  Sender: FDA-Public Use
  Company Number: None

PATIENT
  Age: 23 Year
  Sex: Male
  Weight: 62.14 kg

DRUGS (2)
  1. LEVOFLOXACIN [Suspect]
     Active Substance: LEVOFLOXACIN
     Indication: BRONCHIOLITIS
     Dosage: 500MG/1X DAILY FOR 7 DAYS  TAKEN BY MOUTH
     Route: 048
     Dates: start: 20140702, end: 20140709
  2. LEVOFLOXACIN [Suspect]
     Active Substance: LEVOFLOXACIN
     Indication: ASPIRATION BRONCHIAL
     Dosage: 500MG/1X DAILY FOR 7 DAYS  TAKEN BY MOUTH
     Route: 048
     Dates: start: 20140702, end: 20140709

REACTIONS (1)
  - Paraesthesia [None]

NARRATIVE: CASE EVENT DATE: 20140707
